FAERS Safety Report 8340043-9 (Version None)
Quarter: 2012Q2

REPORT INFORMATION
  Report Type: 
  Country: None (occurrence: None)
  Receive Date: 20120507
  Receipt Date: 20120501
  Transmission Date: 20120825
  Serious: Yes (Other)
  Sender: FDA-Public Use
  Company Number: US-BAYER-2012-042615

PATIENT
  Age: 28 Year
  Sex: Female

DRUGS (3)
  1. AVELOX [Suspect]
     Indication: SINUSITIS
     Dosage: UNK
     Dates: start: 20120425, end: 20120427
  2. VERMIST [Concomitant]
  3. ANTIALLERGIC AGENTS, EXCL CORTICOSTEROIDS [Concomitant]

REACTIONS (8)
  - URTICARIA [None]
  - HYPERSENSITIVITY [None]
  - RASH [None]
  - HYPOAESTHESIA [None]
  - DIZZINESS [None]
  - PANIC ATTACK [None]
  - DYSPNOEA [None]
  - THROAT TIGHTNESS [None]
